FAERS Safety Report 24327834 (Version 1)
Quarter: 2024Q3

REPORT INFORMATION
  Report Type: Spontaneous
  Country: GB (occurrence: GB)
  Receive Date: 20240917
  Receipt Date: 20240917
  Transmission Date: 20241017
  Serious: Yes (Other)
  Sender: SANOFI AVENTIS
  Company Number: GB-ORGANON-O2409GBR000730

PATIENT
  Sex: Female

DRUGS (3)
  1. RIFAMPIN [Interacting]
     Active Substance: RIFAMPIN
     Indication: Hidradenitis
     Dosage: UNK
     Route: 065
  2. CLINDAMYCIN PHOSPHATE [Suspect]
     Active Substance: CLINDAMYCIN PHOSPHATE
     Indication: Hidradenitis
     Dosage: UNK
     Route: 065
  3. NEXPLANON [Suspect]
     Active Substance: ETONOGESTREL
     Indication: Product used for unknown indication
     Dosage: 1 DF (1 IMPLANT)
     Route: 058

REACTIONS (5)
  - Pregnancy with implant contraceptive [Not Recovered/Not Resolved]
  - Unintended pregnancy [Not Recovered/Not Resolved]
  - Drug interaction [Unknown]
  - Drug ineffective [Unknown]
  - Maternal exposure during pregnancy [Unknown]

NARRATIVE: CASE EVENT DATE: 20240101
